FAERS Safety Report 6241794-2 (Version None)
Quarter: 2009Q2

REPORT INFORMATION
  Report Type: 
  Country: None (occurrence: None)
  Receive Date: 20090623
  Receipt Date: 20090612
  Transmission Date: 20091009
  Serious: Yes (Hospitalization, Other)
  Sender: FDA-Public Use
  Company Number: -MYLANLABS-2009S1010568

PATIENT
  Age: 53 Year
  Sex: Male

DRUGS (25)
  1. CELEXA [Suspect]
     Indication: POST-TRAUMATIC STRESS DISORDER
     Route: 048
     Dates: start: 20070301, end: 20090423
  2. CELEXA [Suspect]
     Indication: DEPRESSION
     Route: 048
     Dates: start: 20070301, end: 20090423
  3. CELEXA [Suspect]
     Indication: SUICIDAL IDEATION
     Route: 048
     Dates: start: 20070301, end: 20090423
  4. CELEXA [Suspect]
     Route: 048
     Dates: start: 20090424, end: 20090430
  5. CELEXA [Suspect]
     Route: 048
     Dates: start: 20090424, end: 20090430
  6. CELEXA [Suspect]
     Route: 048
     Dates: start: 20090424, end: 20090430
  7. CELEXA [Suspect]
     Route: 048
     Dates: start: 20090505, end: 20090507
  8. CELEXA [Suspect]
     Route: 048
     Dates: start: 20090505, end: 20090507
  9. CELEXA [Suspect]
     Route: 048
     Dates: start: 20090505, end: 20090507
  10. CELEXA [Suspect]
     Route: 048
     Dates: start: 20090508, end: 20090514
  11. CELEXA [Suspect]
     Route: 048
     Dates: start: 20090508, end: 20090514
  12. CELEXA [Suspect]
     Route: 048
     Dates: start: 20090508, end: 20090514
  13. VICODIN [Suspect]
     Indication: PAIN
     Dates: start: 20090220, end: 20090424
  14. DILAUDID [Suspect]
     Indication: PAIN
     Dates: start: 20090220, end: 20090424
  15. NEURONTIN [Suspect]
     Indication: PAIN
     Dates: start: 20090220, end: 20090424
  16. METOPROLOL SUCCINATE [Suspect]
     Indication: HYPERTENSION
     Dates: start: 20030101, end: 20081001
  17. TRAMADOL HCL [Suspect]
     Indication: BACK PAIN
     Dates: start: 20081001, end: 20090424
  18. XANAX [Concomitant]
     Indication: ANXIETY
     Dates: start: 20070301, end: 20070501
  19. ATIVAN [Concomitant]
     Indication: ANXIETY
     Dates: start: 20070501, end: 20070601
  20. CLONAZEPAM [Concomitant]
     Indication: ANXIETY
     Route: 048
     Dates: start: 20070601
  21. LISINOPRIL [Concomitant]
     Indication: HYPERTENSION
     Dates: start: 20060808
  22. ACTOS [Concomitant]
  23. ALLOPURINOL [Concomitant]
     Indication: GOUT
  24. PRAVACHOL [Concomitant]
  25. IBUPROFEN [Concomitant]
     Indication: PAIN
     Dosage: POST THORACOTOMY PAIN SYNDROME
     Route: 048
     Dates: start: 20090301

REACTIONS (9)
  - DISORIENTATION [None]
  - DIZZINESS [None]
  - FUNGAL INFECTION [None]
  - HYPOTENSION [None]
  - LOSS OF CONSCIOUSNESS [None]
  - MENTAL STATUS CHANGES [None]
  - OBSESSIVE-COMPULSIVE PERSONALITY DISORDER [None]
  - PNEUMONIA [None]
  - POST-THORACOTOMY PAIN SYNDROME [None]
